FAERS Safety Report 6618304-0 (Version None)
Quarter: 2010Q1

REPORT INFORMATION
  Report Type: 
  Country: None (occurrence: None)
  Receive Date: 20100302
  Receipt Date: 20100218
  Transmission Date: 20100710
  Serious: Yes (Hospitalization)
  Sender: FDA-Public Use
  Company Number: 2009-196588-NL

PATIENT
  Age: 19 Year
  Sex: Female
  Weight: 77.1115 kg

DRUGS (2)
  1. NUVARING [Suspect]
     Indication: CONTRACEPTION
     Dosage: 1 DF; Q3W; VAG
     Route: 067
     Dates: start: 20031201, end: 20060113
  2. AUGMENTIN [Concomitant]

REACTIONS (24)
  - ABORTION MISSED [None]
  - ABSCESS [None]
  - BLOOD THYROID STIMULATING HORMONE DECREASED [None]
  - BODY TINEA [None]
  - CAESAREAN SECTION [None]
  - CELLULITIS [None]
  - CHEST PAIN [None]
  - DRUG EXPOSURE DURING PREGNANCY [None]
  - FIBROSIS [None]
  - FLATULENCE [None]
  - GOITRE [None]
  - HAEMORRHAGE [None]
  - HEPATOSPLENOMEGALY [None]
  - HUMAN PAPILLOMA VIRUS TEST POSITIVE [None]
  - HYPERTENSION [None]
  - INTRA-UTERINE DEATH [None]
  - POST PROCEDURAL HYPOTHYROIDISM [None]
  - PROTEINURIA [None]
  - PULMONARY EMBOLISM [None]
  - PURULENT DISCHARGE [None]
  - RENAL DISORDER [None]
  - RUBELLA ANTIBODY POSITIVE [None]
  - TWIN PREGNANCY [None]
  - WOUND INFECTION [None]
